FAERS Safety Report 6389240-2 (Version None)
Quarter: 2009Q4

REPORT INFORMATION
  Report Type: 
  Country: None (occurrence: None)
  Receive Date: 20091001
  Receipt Date: 20090623
  Transmission Date: 20100525
  Serious: No
  Sender: FDA-Public Use
  Company Number: 1000004606

PATIENT
  Age: 83 Year
  Sex: Female
  Weight: 63.5 kg

DRUGS (7)
  1. BYSTOLIC [Suspect]
     Indication: HYPERTENSION
     Dosage: 5 MG (5 MG, 1 IN 1 D), ORAL
     Route: 048
     Dates: start: 20080527
  2. ATACAND [Concomitant]
  3. HYDROCHLOROTHIAZIDE (HYDROCHLOROTHIAZE) (HYDROCHLOROTHIAZE) [Concomitant]
  4. PRAVASTATIN [Concomitant]
  5. XANAX (ALPRAZOLAM) (ALPRAZOLAM) [Concomitant]
  6. DARVOCET [Concomitant]
  7. LEXAPRO [Concomitant]

REACTIONS (3)
  - CYANOSIS [None]
  - HYPOAESTHESIA [None]
  - VASODILATATION [None]
